FAERS Safety Report 9344430 (Version 1)
Quarter: 2013Q2

REPORT INFORMATION
  Report Type: Spontaneous
  Country: FR (occurrence: FR)
  Receive Date: 20130612
  Receipt Date: 20130612
  Transmission Date: 20140414
  Serious: Yes (Other)
  Sender: FDA-Public Use
  Company Number: FR-COVIDIEN/TYCO HEALTHCARE/MALLINCKRODT-T201302831

PATIENT
  Age: 43 Year
  Sex: Female

DRUGS (2)
  1. OPTIJECT [Suspect]
     Indication: COMPUTERISED TOMOGRAM
     Dosage: 110 ML, SINGLE
     Route: 042
     Dates: start: 20130425, end: 20130425
  2. BETADINE                           /00080001/ [Concomitant]
     Indication: INFECTION PROPHYLAXIS
     Dosage: UNK
     Route: 003

REACTIONS (1)
  - Anaphylactoid reaction [Recovered/Resolved]
